FAERS Safety Report 7086266-0 (Version None)
Quarter: 2010Q4

REPORT INFORMATION
  Report Type: 
  Country: None (occurrence: None)
  Receive Date: 20101105
  Receipt Date: 20101027
  Transmission Date: 20110411
  Serious: No
  Sender: FDA-Public Use
  Company Number: JP-CEPHALON-2009010434

PATIENT
  Sex: Male

DRUGS (2)
  1. MODAFINIL [Suspect]
     Indication: NARCOLEPSY
     Route: 048
     Dates: start: 20080308, end: 20080321
  2. MODAFINIL [Suspect]
     Route: 048
     Dates: start: 20080322

REACTIONS (2)
  - HEADACHE [None]
  - PRURIGO [None]
